FAERS Safety Report 4896747-3 (Version None)
Quarter: 2005Q4

REPORT INFORMATION
  Report Type: 
  Country: None (occurrence: None)
  Receive Date: 20051223
  Receipt Date: 20051019
  Transmission Date: 20060501
  Serious: Yes (Other)
  Sender: FDA-Public Use
  Company Number: PHEH2005US11676

PATIENT
  Age: 50 Year
  Sex: Female

DRUGS (1)
  1. CLOZARIL [Suspect]
     Dosage: 600 MG, QD, ORAL
     Route: 048
     Dates: start: 20050801

REACTIONS (1)
  - BLOOD PRESSURE FLUCTUATION [None]
